FAERS Safety Report 7473999-7 (Version None)
Quarter: 2011Q2

REPORT INFORMATION
  Report Type: 
  Country: None (occurrence: None)
  Receive Date: 20110511
  Receipt Date: 20110428
  Transmission Date: 20111010
  Serious: Yes (Other)
  Sender: FDA-Public Use
  Company Number: US-BAYER-201040345NA

PATIENT
  Sex: Female
  Weight: 71.2 kg

DRUGS (15)
  1. PROPOFOL [Concomitant]
     Dosage: UNK
     Dates: start: 19990913
  2. PROTAMINE SULFATE [Concomitant]
  3. TRASYLOL [Suspect]
     Indication: CORONARY ARTERY BYPASS
     Dosage: UNK
     Route: 042
     Dates: start: 19990913
  4. ZEMURON [Concomitant]
     Dosage: UNK
     Dates: start: 19990913
  5. VERSED [Concomitant]
     Dosage: UNK
     Dates: start: 19990913
  6. FENTANYL [Concomitant]
     Dosage: UNK
     Dates: start: 19990913
  7. CEFTIN [Concomitant]
     Dosage: 1 G, UNK
     Route: 042
     Dates: start: 19990913
  8. NITROGLYCERIN [Concomitant]
     Dosage: UNK
     Dates: start: 19990913
  9. AMICAR [Concomitant]
     Dosage: 10 G, UNK
     Route: 042
     Dates: start: 19990913, end: 19990913
  10. MELPHALAN HYDROCHLORIDE [Concomitant]
     Dosage: UNK
  11. ATIVAN [Concomitant]
     Dosage: UNK
     Dates: start: 19990913
  12. ACETYLSALICYLIC ACID SRT [Concomitant]
  13. PRILOSEC [Concomitant]
  14. LOPRESSOR [Concomitant]
  15. AMBIEN [Concomitant]

REACTIONS (13)
  - PAIN [None]
  - UNEVALUABLE EVENT [None]
  - FEAR [None]
  - FEAR OF DEATH [None]
  - RENAL INJURY [None]
  - NERVOUSNESS [None]
  - EMOTIONAL DISTRESS [None]
  - RENAL FAILURE [None]
  - MULTI-ORGAN FAILURE [None]
  - INJURY [None]
  - ANHEDONIA [None]
  - ANXIETY [None]
  - DEPRESSION [None]
